FAERS Safety Report 7474049-9 (Version None)
Quarter: 2011Q2

REPORT INFORMATION
  Report Type: 
  Country: None (occurrence: None)
  Receive Date: 20110511
  Receipt Date: 20110204
  Transmission Date: 20111010
  Serious: Yes (Other)
  Sender: FDA-Public Use
  Company Number: PHHY2011FR18934

PATIENT
  Age: 67 Year
  Sex: Female

DRUGS (3)
  1. PACLITAXEL [Suspect]
     Dosage: UNK
     Dates: start: 20080301
  2. AFINITOR [Suspect]
     Dosage: 10 MG DAILY
     Route: 048
     Dates: start: 20080301
  3. HERCEPTIN [Suspect]
     Dosage: UNK
     Dates: start: 20080301

REACTIONS (2)
  - GASTRIC HAEMORRHAGE [None]
  - ANAEMIA [None]
